FAERS Safety Report 11917070 (Version 1)
Quarter: 2016Q1

REPORT INFORMATION
  Report Type: Spontaneous
  Country: CA (occurrence: CA)
  Receive Date: 20160114
  Receipt Date: 20160114
  Transmission Date: 20160526
  Serious: Yes (Death)
  Sender: FDA-Public Use
  Company Number: CA-TEVA-625233ACC

PATIENT
  Age: 68 Year
  Sex: Male

DRUGS (6)
  1. CHOLESTYRAMINE. [Concomitant]
     Active Substance: CHOLESTYRAMINE
  2. MEROPENEM. [Concomitant]
     Active Substance: MEROPENEM
     Route: 042
  3. PIPERACILLIN/TAZOBACTAM [Concomitant]
     Active Substance: PIPERACILLIN SODIUM\TAZOBACTAM SODIUM
  4. LEFLUNOMIDE. [Interacting]
     Active Substance: LEFLUNOMIDE
     Indication: RHEUMATOID ARTHRITIS
     Route: 048
  5. AMOXICILLIN. [Suspect]
     Active Substance: AMOXICILLIN
     Indication: SINUSITIS
     Route: 048
  6. NEUPOGEN VIALS [Concomitant]
     Route: 042

REACTIONS (6)
  - Dialysis [Fatal]
  - Toxicity to various agents [Fatal]
  - Blood creatinine increased [Fatal]
  - Odynophagia [Fatal]
  - Drug interaction [Fatal]
  - Pancytopenia [Fatal]
